FAERS Safety Report 6719893-8 (Version None)
Quarter: 2010Q2

REPORT INFORMATION
  Report Type: 
  Country: None (occurrence: None)
  Receive Date: 20100511
  Receipt Date: 20100510
  Transmission Date: 20101027
  Serious: Yes (Hospitalization, Other)
  Sender: FDA-Public Use
  Company Number: US-CEPHALON-2010002481

PATIENT
  Sex: Male
  Weight: 96 kg

DRUGS (2)
  1. NUVIGIL [Suspect]
     Indication: HYPERSOMNIA
     Route: 048
  2. METHADONE HCL [Concomitant]

REACTIONS (2)
  - DRUG INTERACTION [None]
  - OPISTHOTONUS [None]
